FAERS Safety Report 7424503-0 (Version None)
Quarter: 2011Q2

REPORT INFORMATION
  Report Type: 
  Country: None (occurrence: None)
  Receive Date: 20110419
  Receipt Date: 20110414
  Transmission Date: 20111010
  Serious: Yes (Death)
  Sender: FDA-Public Use
  Company Number: IE-AMGEN-IRLSP2011019966

PATIENT
  Age: 61 Year
  Sex: Female

DRUGS (19)
  1. VALOID                             /00014901/ [Concomitant]
  2. MOTILIUM                           /00498201/ [Concomitant]
  3. ADALAT [Concomitant]
  4. CIPLOX                             /00697202/ [Concomitant]
  5. GLUCOPHAGE [Concomitant]
  6. DEXAMETHASONE [Concomitant]
  7. VENTOLIN [Concomitant]
  8. BECOTIDE [Concomitant]
  9. DF118 [Concomitant]
  10. NORTEM [Concomitant]
  11. NUSEALS [Concomitant]
  12. MYCOSTATIN                         /00036501/ [Concomitant]
  13. TRAMIL                             /00020001/ [Concomitant]
  14. LYRICA [Concomitant]
  15. SPIRIVA [Concomitant]
  16. ZOTON [Concomitant]
  17. NEULASTA [Suspect]
     Indication: CHEMOTHERAPY
     Dosage: 6 MG, 3 TIMES/WK
     Route: 058
  18. SEREVENT [Concomitant]
  19. VEPESID [Concomitant]

REACTIONS (1)
  - DEATH [None]
